FAERS Safety Report 5659474-0 (Version None)
Quarter: 2008Q1

REPORT INFORMATION
  Report Type: 
  Country: None (occurrence: None)
  Receive Date: 20080311
  Receipt Date: 20080225
  Transmission Date: 20080703
  Serious: Yes (Other)
  Sender: FDA-Public Use
  Company Number: PHHY2008JP02413

PATIENT

DRUGS (1)
  1. TEGRETOL [Suspect]
     Dosage: 100 MG TWICE DAILY
     Route: 048

REACTIONS (1)
  - HAEMORRHAGE [None]
